FAERS Safety Report 16962001 (Version 1)
Quarter: 2019Q4

REPORT INFORMATION
  Report Type: Spontaneous
  Country: US (occurrence: US)
  Receive Date: 20191024
  Receipt Date: 20191024
  Transmission Date: 20200122
  Serious: No
  Sender: FDA-Public Use
  Company Number: None

PATIENT
  Age: 26 Year
  Sex: Female
  Weight: 76.5 kg

DRUGS (3)
  1. CELEXA [Concomitant]
     Active Substance: CITALOPRAM HYDROBROMIDE
  2. TOPAMAX [Concomitant]
     Active Substance: TOPIRAMATE
  3. EMGALITY [Suspect]
     Active Substance: GALCANEZUMAB-GNLM
     Indication: MIGRAINE

REACTIONS (5)
  - Feeling abnormal [None]
  - Nausea [None]
  - Dizziness [None]
  - Migraine [None]
  - Condition aggravated [None]

NARRATIVE: CASE EVENT DATE: 20191016
